FAERS Safety Report 9764933 (Version 2)
Quarter: 2014Q2

REPORT INFORMATION
  Report Type: Spontaneous
  Country: US (occurrence: US)
  Receive Date: 20131217
  Receipt Date: 20140421
  Transmission Date: 20141212
  Serious: No
  Sender: FDA-Public Use
  Company Number: US-BIOGENIDEC-2013BI112051

PATIENT
  Age: 45 Year
  Sex: Female

DRUGS (2)
  1. TECFIDERA [Suspect]
     Indication: MULTIPLE SCLEROSIS
     Route: 048
     Dates: start: 20131021
  2. TECFIDERA [Suspect]
     Indication: MULTIPLE SCLEROSIS
     Route: 048
     Dates: start: 20131027

REACTIONS (8)
  - Optic neuritis [Unknown]
  - Paraesthesia [Unknown]
  - Haematochezia [Unknown]
  - Glossodynia [Unknown]
  - Oral discomfort [Unknown]
  - Hypoaesthesia [Unknown]
  - Arthralgia [Unknown]
  - Gait disturbance [Unknown]
